FAERS Safety Report 15055223 (Version 6)
Quarter: 2018Q4

REPORT INFORMATION
  Report Type: Report from Study
  Country: US (occurrence: US)
  Receive Date: 20180622
  Receipt Date: 20181226
  Transmission Date: 20190204
  Serious: Yes (Hospitalization, Other)
  Sender: FDA-Public Use
  Company Number: PHEH2018US025073

PATIENT
  Age: 61 Year
  Sex: Female

DRUGS (1)
  1. COSENTYX [Suspect]
     Active Substance: SECUKINUMAB
     Indication: PSORIATIC ARTHROPATHY
     Dosage: 300 MG, QMO
     Route: 058

REACTIONS (18)
  - Radius fracture [Unknown]
  - Balance disorder [Unknown]
  - Speech disorder [Unknown]
  - Fall [Unknown]
  - Drug ineffective [Unknown]
  - Osteoporosis [Unknown]
  - Upper limb fracture [Unknown]
  - Migraine [Unknown]
  - Frustration tolerance decreased [Unknown]
  - Lower limb fracture [Unknown]
  - Wrist fracture [Unknown]
  - Asthenia [Unknown]
  - Gastric disorder [Unknown]
  - Pain [Unknown]
  - Dyspnoea [Unknown]
  - Movement disorder [Unknown]
  - Arthralgia [Unknown]
  - Body height decreased [Unknown]

NARRATIVE: CASE EVENT DATE: 201807
